FAERS Safety Report 20600518 (Version 2)
Quarter: 2022Q1

REPORT INFORMATION
  Report Type: Report from Study
  Country: JP (occurrence: JP)
  Receive Date: 20220316
  Receipt Date: 20220325
  Transmission Date: 20220423
  Serious: Yes (Other)
  Sender: FDA-Public Use
  Company Number: JP-CELLTRION INC.-2020JP027636

PATIENT

DRUGS (7)
  1. INFLIXIMAB-DYYB [Suspect]
     Active Substance: INFLIXIMAB-DYYB
     Indication: Crohn^s disease
     Dosage: 225 MILLIGRAM
     Route: 041
     Dates: start: 20181220, end: 20181220
  2. INFLIXIMAB-DYYB [Suspect]
     Active Substance: INFLIXIMAB-DYYB
     Dosage: 220 MILLIGRAM
     Route: 041
     Dates: start: 20190218, end: 20190218
  3. INFLIXIMAB-DYYB [Suspect]
     Active Substance: INFLIXIMAB-DYYB
     Dosage: 220 MILLIGRAM
     Route: 041
     Dates: start: 20190411, end: 20190411
  4. INFLIXIMAB-DYYB [Suspect]
     Active Substance: INFLIXIMAB-DYYB
     Dosage: 225 MILLIGRAM
     Route: 041
     Dates: start: 20190613, end: 20190613
  5. INFLIXIMAB-DYYB [Suspect]
     Active Substance: INFLIXIMAB-DYYB
     Dosage: 225 MILLIGRAM
     Route: 041
     Dates: start: 20191205, end: 20191205
  6. INFLIXIMAB-DYYB [Suspect]
     Active Substance: INFLIXIMAB-DYYB
     Dosage: UNK
     Route: 041
     Dates: start: 20210107, end: 20210107
  7. MESALAMINE [Concomitant]
     Active Substance: MESALAMINE
     Dosage: 3000 MG, QD
     Route: 048

REACTIONS (7)
  - Subclavian artery occlusion [Not Recovered/Not Resolved]
  - Abdominal discomfort [Recovered/Resolved]
  - Ear discomfort [Unknown]
  - Abdominal distension [Not Recovered/Not Resolved]
  - Pyrexia [Recovered/Resolved]
  - Overdose [Unknown]
  - Product use issue [Unknown]

NARRATIVE: CASE EVENT DATE: 20190218
